FAERS Safety Report 4453726-8 (Version None)
Quarter: 2004Q3

REPORT INFORMATION
  Report Type: 
  Country: None (occurrence: None)
  Receive Date: 20040920
  Receipt Date: 20040913
  Transmission Date: 20050211
  Serious: Yes (Other)
  Sender: FDA-Public Use
  Company Number: PHBS2004JP12148

PATIENT
  Age: 72 Year
  Sex: Male
  Weight: 67 kg

DRUGS (6)
  1. DIOVAN [Suspect]
     Route: 048
     Dates: start: 20040624, end: 20040722
  2. LASIX [Suspect]
     Indication: CARDIAC FAILURE
     Route: 048
     Dates: start: 20040624, end: 20040722
  3. ALDACTONE-A [Suspect]
     Indication: CARDIAC FAILURE
     Route: 048
     Dates: start: 20040624, end: 20040722
  4. 8-HOUR BAYER [Concomitant]
     Route: 048
  5. AMLODIN [Concomitant]
     Route: 048
  6. NORVASC [Concomitant]
     Route: 048

REACTIONS (1)
  - PLATELET COUNT DECREASED [None]
